FAERS Safety Report 5534048-0 (Version None)
Quarter: 2007Q4

REPORT INFORMATION
  Report Type: 
  Country: None (occurrence: None)
  Receive Date: 20071129
  Receipt Date: 20071129
  Transmission Date: 20080405
  Serious: No
  Sender: FDA-Public Use
  Company Number: None

PATIENT
  Age: 43 Year
  Weight: 100.6985 kg

DRUGS (1)
  1. VALPROIC ACID [Suspect]
     Dosage: 1500 MG DAILY PO
     Route: 048

REACTIONS (1)
  - PYREXIA [None]
